FAERS Safety Report 6911929-4 (Version None)
Quarter: 2010Q3

REPORT INFORMATION
  Report Type: 
  Country: None (occurrence: None)
  Receive Date: 20100806
  Receipt Date: 20070924
  Transmission Date: 20110219
  Serious: No
  Sender: FDA-Public Use
  Company Number: US-PFIZER INC-2003010354

PATIENT
  Sex: Male
  Weight: 68.95 kg

DRUGS (3)
  1. GLUCOTROL XL [Suspect]
     Indication: DIABETES MELLITUS
     Dosage: DAILY
     Route: 048
     Dates: start: 20030317, end: 20030530
  2. LIPITOR [Concomitant]
     Route: 048
  3. MEVACOR [Concomitant]
     Route: 048
     Dates: start: 20030424

REACTIONS (3)
  - BACK PAIN [None]
  - BLOOD GLUCOSE INCREASED [None]
  - IRRITABLE BOWEL SYNDROME [None]
